FAERS Safety Report 6261108-1 (Version None)
Quarter: 2009Q3

REPORT INFORMATION
  Report Type: 
  Country: None (occurrence: None)
  Receive Date: 20090709
  Receipt Date: 20081126
  Transmission Date: 20100115
  Serious: No
  Sender: FDA-Public Use
  Company Number: US-KINGPHARMUSA00001-K200801356

PATIENT
  Sex: Female
  Weight: 68.027 kg

DRUGS (1)
  1. LEVOXYL [Suspect]
     Indication: THYROIDECTOMY
     Dosage: UNK, QD
     Route: 048
     Dates: start: 20080201

REACTIONS (1)
  - ALOPECIA [None]
